FAERS Safety Report 18585793 (Version 1)
Quarter: 2020Q4

REPORT INFORMATION
  Report Type: Spontaneous
  Country: NL (occurrence: BG)
  Receive Date: 20201207
  Receipt Date: 20201207
  Transmission Date: 20210114
  Serious: Yes (Disabling)
  Sender: FDA-Public Use
  Company Number: BG-FRESENIUS KABI-FK202012632

PATIENT
  Age: 7 Year
  Sex: Male

DRUGS (2)
  1. NUSINERSEN SODIUM. [Suspect]
     Active Substance: NUSINERSEN SODIUM
     Indication: SPINAL MUSCULAR ATROPHY
     Dosage: 12 MG
     Route: 037
     Dates: start: 20200429
  2. PROPOFOL (MANUFACTURER UNKNOWN) [Suspect]
     Active Substance: PROPOFOL
     Indication: SEDATIVE THERAPY
     Dosage: UNK
     Route: 042

REACTIONS (4)
  - Abdominal pain [Unknown]
  - Sedation complication [Unknown]
  - Somnolence [Recovered/Resolved with Sequelae]
  - Vomiting [Unknown]

NARRATIVE: CASE EVENT DATE: 20201103
